FAERS Safety Report 4263880-9 (Version None)
Quarter: 2004Q1

REPORT INFORMATION
  Report Type: 
  Country: None (occurrence: None)
  Receive Date: 20040102
  Receipt Date: 20031212
  Transmission Date: 20041129
  Serious: Yes (Hospitalization)
  Sender: FDA-Public Use
  Company Number: EWC031237407

PATIENT
  Age: 55 Year
  Sex: Female

DRUGS (5)
  1. RALOXIFENE HCL [Suspect]
     Indication: OSTEOPOROSIS POSTMENOPAUSAL
     Dosage: 60 MG/DAY
  2. ANAFANIL (CLOMIPRAMINE HYDROCHLORIDE) [Concomitant]
  3. TRAMADOL HCL [Concomitant]
  4. KREON (PANCREATIN) [Concomitant]
  5. RAMIPRIL [Concomitant]

REACTIONS (9)
  - BLOOD LACTATE DEHYDROGENASE INCREASED [None]
  - CHEST PAIN [None]
  - COUGH [None]
  - INTERNATIONAL NORMALISED RATIO DECREASED [None]
  - PAIN [None]
  - PLATELET COUNT INCREASED [None]
  - PYREXIA [None]
  - RED BLOOD CELL SEDIMENTATION RATE INCREASED [None]
  - WHITE BLOOD CELL COUNT INCREASED [None]
